FAERS Safety Report 22645831 (Version 1)
Quarter: 2023Q2

REPORT INFORMATION
  Report Type: Report from Study
  Country: DK (occurrence: DK)
  Receive Date: 20230627
  Receipt Date: 20230627
  Transmission Date: 20230721
  Serious: Yes (Hospitalization)
  Sender: FDA-Public Use
  Company Number: DK-ABBVIE-5281385

PATIENT
  Age: 64 Year
  Sex: Male

DRUGS (3)
  1. VENETOCLAX [Suspect]
     Active Substance: VENETOCLAX
     Indication: Chronic lymphocytic leukaemia
     Dosage: 400
     Dates: start: 20180925
  2. VENETOCLAX [Suspect]
     Active Substance: VENETOCLAX
     Indication: Chronic lymphocytic leukaemia
     Route: 048
     Dates: start: 20180925, end: 20190819
  3. IBRUTINIB [Suspect]
     Active Substance: IBRUTINIB
     Indication: Chronic lymphocytic leukaemia
     Dosage: DATE OF LAST DOSE PRIOR TO AE: 05 JUN 2023
     Route: 048
     Dates: start: 20180626

REACTIONS (1)
  - Haemophilus infection [Recovered/Resolved]

NARRATIVE: CASE EVENT DATE: 20230602
